FAERS Safety Report 21931809 (Version 2)
Quarter: 2023Q1

REPORT INFORMATION
  Report Type: Spontaneous
  Country: US (occurrence: US)
  Receive Date: 20230131
  Receipt Date: 20230315
  Transmission Date: 20230418
  Serious: No
  Sender: FDA-Public Use
  Company Number: US-PFIZER INC-202300036213

PATIENT
  Age: 64 Year
  Sex: Female
  Weight: 125.19 kg

DRUGS (1)
  1. PAXLOVID [Suspect]
     Active Substance: NIRMATRELVIR\RITONAVIR
     Indication: COVID-19 treatment
     Dosage: 300 MG AND 100 MG DOSE PACK TWICE A DAY, TWO TIMES A DAY IN THE MORNING AND THEN IN THE EVENING
     Route: 048

REACTIONS (4)
  - Incorrect dose administered [Unknown]
  - Product blister packaging issue [Unknown]
  - Illness [Unknown]
  - Malaise [Unknown]
